FAERS Safety Report 8631214 (Version 3)
Quarter: 2012Q4

REPORT INFORMATION
  Report Type: 
  Country: US (occurrence: US)
  Receive Date: 20120622
  Receipt Date: 20121219
  Transmission Date: 20130627
  Serious: Yes (Life-Threatening, Hospitalization, Disabling, Other)
  Sender: FDA-Public Use
  Company Number: CHPA2012US012739

PATIENT
  Sex: Female

DRUGS (2)
  1. MYOFLEX [Suspect]
     Indication: PAIN
     Dosage: Unk, PRN
     Route: 061
     Dates: start: 1987
  2. MYOFLEX [Suspect]
     Dosage: UNK, PRN
     Route: 061

REACTIONS (34)
  - Feeling abnormal [Unknown]
  - Myocardial infarction [Recovered/Resolved]
  - Walking aid user [Recovered/Resolved]
  - Drug dependence [Not Recovered/Not Resolved]
  - Thrombosis [Not Recovered/Not Resolved]
  - Lower limb fracture [Recovered/Resolved]
  - Meniscus injury [Recovered/Resolved]
  - Activities of daily living impaired [Unknown]
  - Pain in extremity [Not Recovered/Not Resolved]
  - Musculoskeletal pain [Not Recovered/Not Resolved]
  - Tibia fracture [Recovered/Resolved]
  - Tendon rupture [Recovered/Resolved]
  - Balance disorder [Unknown]
  - Ankle fracture [Recovered/Resolved]
  - Fracture [Recovered/Resolved]
  - Extremity contracture [Unknown]
  - Micturition disorder [Not Recovered/Not Resolved]
  - Coordination abnormal [Unknown]
  - Fibromyalgia [Unknown]
  - Weight increased [Not Recovered/Not Resolved]
  - Gait disturbance [Not Recovered/Not Resolved]
  - Pain [Not Recovered/Not Resolved]
  - Vomiting [Unknown]
  - Burning sensation [Not Recovered/Not Resolved]
  - Hypoaesthesia [Not Recovered/Not Resolved]
  - Dyspnoea [Not Recovered/Not Resolved]
  - Blood pressure decreased [Recovered/Resolved]
  - Inflammation [Not Recovered/Not Resolved]
  - Tenderness [Unknown]
  - Paraesthesia [Unknown]
  - Eye pruritus [Recovered/Resolved]
  - Eye irritation [Recovered/Resolved]
  - Erythema [Not Recovered/Not Resolved]
  - Accidental exposure to product [Recovered/Resolved]
